FAERS Safety Report 4699015-8 (Version None)
Quarter: 2005Q2

REPORT INFORMATION
  Report Type: 
  Country: None (occurrence: None)
  Receive Date: 20050624
  Receipt Date: 20050620
  Transmission Date: 20051028
  Serious: Yes (Other)
  Sender: FDA-Public Use
  Company Number: PHRM2005FR01917

PATIENT
  Sex: Female

DRUGS (1)
  1. TAREG [Suspect]
     Route: 048

REACTIONS (1)
  - NEUROPATHY [None]
